FAERS Safety Report 5099616-1 (Version None)
Quarter: 2006Q3

REPORT INFORMATION
  Report Type: 
  Country: None (occurrence: None)
  Receive Date: 20060908
  Receipt Date: 20060830
  Transmission Date: 20061208
  Serious: Yes (Hospitalization)
  Sender: FDA-Public Use
  Company Number: 2006UW17184

PATIENT
  Age: 80 Year
  Sex: Female
  Weight: 62.6 kg

DRUGS (3)
  1. CRESTOR [Suspect]
     Indication: BLOOD CHOLESTEROL INCREASED
     Route: 048
  2. NEXIUM [Concomitant]
     Route: 048
  3. CELEBREX [Concomitant]

REACTIONS (4)
  - ABDOMINAL INFECTION [None]
  - CONSTIPATION [None]
  - GASTRIC INFECTION [None]
  - VOMITING [None]
